FAERS Safety Report 5887480-X (Version None)
Quarter: 2008Q3

REPORT INFORMATION
  Report Type: 
  Country: None (occurrence: None)
  Receive Date: 20080918
  Receipt Date: 20080916
  Transmission Date: 20090109
  Serious: Yes (Other)
  Sender: FDA-Public Use
  Company Number: JP-BAYER-200811610BYL

PATIENT
  Age: 63 Year
  Sex: Male
  Weight: 58 kg

DRUGS (12)
  1. CIPROXAN-I.V. [Suspect]
     Indication: SEPSIS
     Dosage: UNIT DOSE: 300 MG
     Route: 041
     Dates: start: 20070816, end: 20070817
  2. PAZUCROSS [Suspect]
     Indication: SEPSIS
     Route: 042
     Dates: start: 20070815
  3. UNASYN [Concomitant]
     Indication: DRUG USE FOR UNKNOWN INDICATION
     Dosage: TOTAL DAILY DOSE: 6.0 G
     Route: 042
     Dates: start: 20070817, end: 20070822
  4. BISOLVON [Concomitant]
     Indication: DRUG USE FOR UNKNOWN INDICATION
     Route: 042
     Dates: start: 20070816, end: 20070820
  5. FAMOTIDINE [Concomitant]
     Indication: DRUG USE FOR UNKNOWN INDICATION
     Route: 065
     Dates: start: 20070816, end: 20070820
  6. NEO-MINOPHAGEN C [Concomitant]
     Indication: DRUG USE FOR UNKNOWN INDICATION
     Route: 042
     Dates: start: 20070816, end: 20070820
  7. MEYLON [Concomitant]
     Indication: DRUG USE FOR UNKNOWN INDICATION
     Dosage: TOTAL DAILY DOSE: 200 ML
     Route: 065
     Dates: start: 20070816, end: 20070816
  8. MEROPEN [Concomitant]
     Indication: SEPSIS
     Route: 042
  9. FUTHAN [Concomitant]
     Indication: SEPSIS
     Route: 042
  10. ELASPOL [Concomitant]
     Indication: DRUG USE FOR UNKNOWN INDICATION
     Route: 042
     Dates: start: 20070815
  11. STEROID [Concomitant]
     Route: 065
     Dates: start: 20070816
  12. ROHYPNOL [Concomitant]
     Dosage: UNIT DOSE: 2 MG
     Route: 048
     Dates: end: 20070811

REACTIONS (4)
  - CONVULSION [None]
  - DEPRESSED LEVEL OF CONSCIOUSNESS [None]
  - LOSS OF CONSCIOUSNESS [None]
  - PHOTOSENSITIVITY REACTION [None]
